FAERS Safety Report 8623868-1 (Version None)
Quarter: 2012Q3

REPORT INFORMATION
  Report Type: 
  Country: None (occurrence: None)
  Receive Date: 20120827
  Receipt Date: 20120816
  Transmission Date: 20120928
  Serious: Yes (Other)
  Sender: FDA-Public Use
  Company Number: US-NOVOPROD-357826

PATIENT
  Age: 68 Year
  Sex: Female
  Weight: 47.166 kg

DRUGS (5)
  1. VAGIFEM [Suspect]
     Dosage: 5 A?G, QD
     Route: 067
     Dates: start: 20020101
  2. VITAMINS                           /00067501/ [Concomitant]
     Indication: PRODUCT USED FOR UNKNOWN INDICATION
  3. VAGIFEM [Suspect]
     Indication: ATROPHIC VULVOVAGINITIS
     Dosage: 10 A?G, QD
     Dates: start: 20020101
  4. MELATONIN [Concomitant]
     Indication: PRODUCT USED FOR UNKNOWN INDICATION
     Route: 048
  5. GLUCOSAMINE [Concomitant]
     Indication: PRODUCT USED FOR UNKNOWN INDICATION
     Route: 048

REACTIONS (2)
  - VAGINAL HAEMORRHAGE [None]
  - UTERINE LEIOMYOMA [None]
